FAERS Safety Report 4588354-7 (Version None)
Quarter: 2005Q1

REPORT INFORMATION
  Report Type: 
  Country: None (occurrence: None)
  Receive Date: 20050216
  Receipt Date: 20050127
  Transmission Date: 20050727
  Serious: Yes (Hospitalization, Other)
  Sender: FDA-Public Use
  Company Number: US_001052535

PATIENT
  Age: 1 Year
  Sex: Female

DRUGS (12)
  1. LENTE ILETIN (BEEF-PORK) INSULIN ZINC [Suspect]
     Indication: DIABETES MELLITUS
  2. ILETIN BEEF/PORK REGULAR INSULIN (INSULIN, ANIMAL) [Suspect]
     Indication: DIABETES MELLITUS
  3. NPH ILETIN I (BEEF-PORK) [Suspect]
     Indication: DIABETES MELLITUS
  4. INSULIN [Suspect]
     Indication: DIABETES MELLITUS
     Dates: start: 19610101
  5. ILETIN-PORK NPH INSULIN (INSULIN, ANIMAL) [Suspect]
  6. REGULAR ILETIN II (PORK) [Suspect]
  7. HUMULIN-HUMAN INSULIN (RDNA) UNKNOWN FORMULATION (HU [Suspect]
     Indication: DIABETES MELLITUS
     Dates: start: 19830101, end: 19830101
  8. HUMALOG [Suspect]
     Indication: DIABETES MELLITUS INSULIN-DEPENDENT
     Dates: start: 20040101
  9. LANTUS [Concomitant]
  10. TOPROL-XL [Concomitant]
  11. LISINOPRIL [Concomitant]
  12. LASIX [Concomitant]

REACTIONS (14)
  - DIABETES MELLITUS INADEQUATE CONTROL [None]
  - DIALYSIS [None]
  - DYSPNOEA [None]
  - EYE DISORDER [None]
  - EYE LASER SURGERY [None]
  - FEELING ABNORMAL [None]
  - FOOT AMPUTATION [None]
  - GASTRIC DILATATION [None]
  - HEART RATE IRREGULAR [None]
  - HYPERTENSION [None]
  - LEG AMPUTATION [None]
  - RASH [None]
  - RENAL TRANSPLANT [None]
  - STENT PLACEMENT [None]
